FAERS Safety Report 7608810-4 (Version None)
Quarter: 2011Q3

REPORT INFORMATION
  Report Type: 
  Country: None (occurrence: None)
  Receive Date: 20110714
  Receipt Date: 20110711
  Transmission Date: 20111222
  Serious: Yes (Other)
  Sender: FDA-Public Use
  Company Number: JP-PFIZER INC-2011156437

PATIENT
  Age: 59 Year
  Sex: Female

DRUGS (7)
  1. LYRICA [Interacting]
     Indication: PAIN IN EXTREMITY
  2. TIZANIDINE HYDROCHLORIDE [Interacting]
     Dosage: UNK
     Route: 048
  3. LYRICA [Suspect]
     Indication: HYPOAESTHESIA
     Dosage: 300 MG DAILY
     Route: 048
     Dates: start: 20110617, end: 20110709
  4. CARBIDOPA AND LEVODOPA [Interacting]
     Dosage: UNK
     Route: 048
  5. DIAZEPAM [Interacting]
     Dosage: UNK
     Route: 048
  6. METHYCOBAL [Concomitant]
     Dosage: UNK
     Route: 048
  7. CHLORPROMAZINE HYDROCHLORIDE [Interacting]
     Dosage: UNK
     Route: 048

REACTIONS (4)
  - NEUROLEPTIC MALIGNANT SYNDROME [None]
  - DRUG INTERACTION [None]
  - PYREXIA [None]
  - SOMNOLENCE [None]
